FAERS Safety Report 7165309-X (Version None)
Quarter: 2010Q4

REPORT INFORMATION
  Report Type: 
  Country: None (occurrence: None)
  Receive Date: 20101215
  Receipt Date: 20091231
  Transmission Date: 20110411
  Serious: No
  Sender: FDA-Public Use
  Company Number: US-AMGEN-KDL383390

PATIENT

DRUGS (2)
  1. ENBREL [Suspect]
     Indication: RHEUMATOID ARTHRITIS
     Dosage: 50 MG, QWK
     Route: 058
     Dates: start: 20060123
  2. ADALIMUMAB [Suspect]

REACTIONS (3)
  - INJECTION SITE PAIN [None]
  - RASH GENERALISED [None]
  - RHEUMATOID ARTHRITIS [None]
